FAERS Safety Report 9129422 (Version 3)
Quarter: 2013Q2

REPORT INFORMATION
  Report Type: Report from Study
  Country: US (occurrence: US)
  Receive Date: 20130228
  Receipt Date: 20130522
  Transmission Date: 20140414
  Serious: No
  Sender: FDA-Public Use
  Company Number: US-TEVA-388368USA

PATIENT
  Sex: Female
  Weight: 99.43 kg

DRUGS (5)
  1. NUVIGIL [Suspect]
     Indication: SLEEP APNOEA SYNDROME
     Dosage: 150 MILLIGRAM DAILY; QD
     Dates: start: 20120417
  2. NUVIGIL [Suspect]
     Indication: NARCOLEPSY
  3. B-12 [Concomitant]
  4. PRENOPLUS [Concomitant]
     Dates: start: 20121114
  5. CLARITIN [Concomitant]
     Indication: HYPERSENSITIVITY
     Dosage: QD
     Dates: start: 20130417

REACTIONS (1)
  - Pregnancy [Unknown]
